FAERS Safety Report 6974525-9 (Version None)
Quarter: 2010Q3

REPORT INFORMATION
  Report Type: 
  Country: None (occurrence: None)
  Receive Date: 20100909
  Receipt Date: 20080808
  Transmission Date: 20110219
  Serious: No
  Sender: FDA-Public Use
  Company Number: US-WYE-H05480408

PATIENT
  Sex: Female

DRUGS (8)
  1. PROTONIX [Suspect]
     Indication: VOMITING
     Route: 048
     Dates: start: 20080801, end: 20080807
  2. COUMADIN [Concomitant]
  3. MAGNESIUM [Concomitant]
  4. ZANTAC [Concomitant]
  5. ERGOCALCIFEROL [Concomitant]
  6. CALCIUM [Concomitant]
  7. PREDNISONE [Concomitant]
  8. FUROSEMIDE [Concomitant]

REACTIONS (4)
  - ARTHRALGIA [None]
  - GAIT DISTURBANCE [None]
  - PAIN IN EXTREMITY [None]
  - SKIN DISCOLOURATION [None]
